FAERS Safety Report 4478538-0 (Version None)
Quarter: 2004Q4

REPORT INFORMATION
  Report Type: 
  Country: None (occurrence: None)
  Receive Date: 20041018
  Receipt Date: 20041018
  Transmission Date: 20050328
  Serious: No
  Sender: FDA-Public Use
  Company Number: None

PATIENT
  Age: 73 Year
  Sex: Male
  Weight: 90.2658 kg

DRUGS (1)
  1. GATIFLOXACIN [Suspect]
     Indication: WOUND INFECTION
     Dosage: 400 MG PO DAILY
     Route: 048
     Dates: start: 20040901, end: 20040903

REACTIONS (1)
  - BLOOD GLUCOSE INCREASED [None]
